FAERS Safety Report 14486617 (Version 1)
Quarter: 2018Q1

REPORT INFORMATION
  Report Type: Spontaneous
  Country: US (occurrence: US)
  Receive Date: 20180204
  Receipt Date: 20180204
  Transmission Date: 20180509
  Serious: Yes (Disabling)
  Sender: FDA-Public Use
  Company Number: None

PATIENT
  Age: 45 Year
  Sex: Male
  Weight: 82.8 kg

DRUGS (2)
  1. CIPROFLOAXCIN HCL 500 MG TAB [Suspect]
     Active Substance: CIPROFLOXACIN HYDROCHLORIDE
     Indication: GASTROINTESTINAL INFECTION
     Route: 048
     Dates: start: 20171211, end: 20171220
  2. MEDROL [Concomitant]
     Active Substance: METHYLPREDNISOLONE

REACTIONS (10)
  - Muscle spasms [None]
  - Night sweats [None]
  - Pyrexia [None]
  - Pain in extremity [None]
  - Peripheral swelling [None]
  - Plantar fasciitis [None]
  - Neuropathy peripheral [None]
  - Condition aggravated [None]
  - Inflammation [None]
  - Arthralgia [None]

NARRATIVE: CASE EVENT DATE: 20171215
